FAERS Safety Report 25722004 (Version 1)
Quarter: 2025Q3

REPORT INFORMATION
  Report Type: Spontaneous
  Country: EU (occurrence: EU)
  Receive Date: 20250825
  Receipt Date: 20250825
  Transmission Date: 20251021
  Serious: Yes (Death, Hospitalization, Other)
  Sender: MYLAN
  Company Number: EU-DialogSolutions-SAAVPROD-PI807892-C1

PATIENT
  Age: 84 Year
  Sex: Female

DRUGS (8)
  1. APIXABAN [Suspect]
     Active Substance: APIXABAN
     Indication: Product used for unknown indication
  2. APIXABAN [Suspect]
     Active Substance: APIXABAN
     Route: 048
  3. APIXABAN [Suspect]
     Active Substance: APIXABAN
     Route: 048
  4. APIXABAN [Suspect]
     Active Substance: APIXABAN
  5. ENOXAPARIN SODIUM [Suspect]
     Active Substance: ENOXAPARIN SODIUM
     Indication: Product used for unknown indication
  6. ENOXAPARIN SODIUM [Suspect]
     Active Substance: ENOXAPARIN SODIUM
     Route: 042
  7. ENOXAPARIN SODIUM [Suspect]
     Active Substance: ENOXAPARIN SODIUM
     Route: 042
  8. ENOXAPARIN SODIUM [Suspect]
     Active Substance: ENOXAPARIN SODIUM

REACTIONS (9)
  - Shock haemorrhagic [Fatal]
  - Syncope [Fatal]
  - Hypotension [Fatal]
  - Hyperhidrosis [Fatal]
  - Abdominal pain [Fatal]
  - Gastrointestinal hypomotility [Fatal]
  - Abdominal mass [Fatal]
  - Pelvic haematoma [Fatal]
  - Haemorrhage [Fatal]
